FAERS Safety Report 12882490 (Version 1)
Quarter: 2016Q4

REPORT INFORMATION
  Report Type: Spontaneous
  Country: US (occurrence: US)
  Receive Date: 20161025
  Receipt Date: 20161025
  Transmission Date: 20170207
  Serious: Yes (Other)
  Sender: FDA-Public Use
  Company Number: US-PFIZER INC-2016491653

PATIENT
  Sex: Female

DRUGS (2)
  1. TREXALL [Suspect]
     Active Substance: METHOTREXATE SODIUM
     Indication: COLITIS ULCERATIVE
     Dosage: UNK
  2. RHEUMATREX [Suspect]
     Active Substance: METHOTREXATE SODIUM
     Indication: COLITIS ULCERATIVE
     Dosage: UNK

REACTIONS (4)
  - Abdominal pain [Unknown]
  - Frequent bowel movements [Unknown]
  - Product use issue [Unknown]
  - Haematochezia [Unknown]
